FAERS Safety Report 8430684-2 (Version None)
Quarter: 2012Q2

REPORT INFORMATION
  Report Type: 
  Country: None (occurrence: None)
  Receive Date: 20120323
  Receipt Date: 20110720
  Transmission Date: 20120825
  Serious: Yes (Other)
  Sender: FDA-Public Use
  Company Number: 163-21880-11061018

PATIENT
  Age: 68 Year
  Sex: Female
  Weight: 77.1115 kg

DRUGS (5)
  1. REVLIMID [Suspect]
     Indication: MULTIPLE MYELOMA
     Dosage: 25 MG, DAILY X 21 DAYS/7 DAYS OFF,PO
     Route: 048
     Dates: start: 20100212
  2. ASA(CETYLSALICYLIC ACID) [Concomitant]
  3. PEPCID [Concomitant]
  4. COMPAZINE [Concomitant]
  5. DECADRON [Concomitant]

REACTIONS (1)
  - DEEP VEIN THROMBOSIS [None]
